FAERS Safety Report 4952755-5 (Version None)
Quarter: 2006Q1

REPORT INFORMATION
  Report Type: 
  Country: None (occurrence: None)
  Receive Date: 20060320
  Receipt Date: 20040623
  Transmission Date: 20060701
  Serious: Yes (Death, Hospitalization)
  Sender: FDA-Public Use
  Company Number: HQ2935524JUN2002

PATIENT
  Age: 45 Year
  Sex: Male
  Weight: 73 kg

DRUGS (11)
  1. MYLOTARG [Suspect]
     Indication: ACUTE MYELOID LEUKAEMIA
     Dosage: 16.2 MG X1 PER 1 DAY, INTRAVENOUS
     Route: 042
     Dates: start: 20020606, end: 20020606
  2. LEVAQUIN [Concomitant]
  3. DIFLUCAN [Concomitant]
  4. BACTRIM [Concomitant]
  5. PROGRAF [Concomitant]
  6. ACYCLOVIR [Concomitant]
  7. TYLENOL W/ CODEINE NO. 3 [Concomitant]
  8. SPORANOX [Concomitant]
  9. MULTIVIT (VITAMIN NOS) [Concomitant]
  10. PRILOSEC [Concomitant]
  11. ATIVAN [Concomitant]

REACTIONS (17)
  - ABDOMINAL PAIN UPPER [None]
  - ASCITES [None]
  - BLOOD ALKALINE PHOSPHATASE INCREASED [None]
  - GASTROINTESTINAL HAEMORRHAGE [None]
  - HAEMATOCRIT DECREASED [None]
  - HAEMOGLOBIN DECREASED [None]
  - HEPATIC FAILURE [None]
  - JAUNDICE [None]
  - MELAENA [None]
  - MULTI-ORGAN FAILURE [None]
  - NEUTROPENIA [None]
  - ORTHOSTATIC HYPOTENSION [None]
  - RED BLOOD CELL COUNT DECREASED [None]
  - THROMBOCYTOPENIA [None]
  - VENOOCCLUSIVE LIVER DISEASE [None]
  - WEIGHT INCREASED [None]
  - WHITE BLOOD CELL COUNT DECREASED [None]
